FAERS Safety Report 14260185 (Version 1)
Quarter: 2017Q4

REPORT INFORMATION
  Report Type: Spontaneous
  Country: GB (occurrence: GB)
  Receive Date: 20171207
  Receipt Date: 20171207
  Transmission Date: 20180321
  Serious: Yes (Death, Hospitalization, Other)
  Sender: FDA-Public Use
  Company Number: GB-PFIZER INC-2017519963

PATIENT
  Age: 71 Year
  Sex: Female

DRUGS (11)
  1. PARACETAMOL [Concomitant]
     Active Substance: ACETAMINOPHEN
     Dosage: 4000 MG, 1X/DAY
     Route: 048
     Dates: start: 20170717
  2. FORTISIP [Concomitant]
     Active Substance: CARBOHYDRATES\FATTY ACIDS\MINERALS\PROTEIN\VITAMINS
     Dosage: 1 DF, 1X/DAY
     Route: 048
     Dates: start: 20170719
  3. PACLITAXEL HOSPIRA [Suspect]
     Active Substance: PACLITAXEL
     Indication: BREAST CANCER METASTATIC
     Dosage: UNK
     Dates: start: 20170713, end: 20170713
  4. CODEINE [Concomitant]
     Active Substance: CODEINE
     Indication: PAIN
     Dosage: UNK, AS NEEDED (30-60MG 4 TIMES A DAY)
     Route: 048
     Dates: start: 20170717
  5. ROSUVASTATIN. [Concomitant]
     Active Substance: ROSUVASTATIN
     Dosage: 10 MG, 1X/DAY (NIGHTTIME)
     Route: 048
     Dates: start: 20170719
  6. CLOPIDOGREL [Concomitant]
     Active Substance: CLOPIDOGREL BISULFATE
     Dosage: 75 MG, 1X/DAY
     Route: 048
     Dates: start: 20170719
  7. PACLITAXEL HOSPIRA [Suspect]
     Active Substance: PACLITAXEL
     Dosage: UNK
     Dates: start: 20170720, end: 20170720
  8. MORPHINE SULFATE. [Concomitant]
     Active Substance: MORPHINE SULFATE
     Indication: PAIN
     Dosage: UNK, AS NEEDED (10MG IN 5 ML. 2-5 - 5MG VARIABLE. UP TO 2 HOURLY)
     Route: 048
     Dates: start: 20170718
  9. HALOPERIDOL. [Concomitant]
     Active Substance: HALOPERIDOL
     Dosage: 1000 UG, 1X/DAY (NIGHTIME)
     Route: 048
     Dates: start: 20170718
  10. VENTOLIN [Concomitant]
     Active Substance: ALBUTEROL SULFATE
     Dosage: UNK UNK, AS NEEDED (1-2 DOSES, FOUR TIMES A DAY)
     Route: 055
     Dates: start: 20170718
  11. QVAR [Concomitant]
     Active Substance: BECLOMETHASONE DIPROPIONATE
     Dosage: 400 UG, 1X/DAY
     Route: 055
     Dates: start: 20170718

REACTIONS (7)
  - Colitis [Fatal]
  - Neutropenia [Fatal]
  - Abdominal sepsis [Fatal]
  - Neutropenic sepsis [Fatal]
  - Abdominal pain lower [Unknown]
  - Nausea [Unknown]
  - Vomiting [Recovered/Resolved]

NARRATIVE: CASE EVENT DATE: 201707
